FAERS Safety Report 9782512 (Version 1)
Quarter: 2013Q4

REPORT INFORMATION
  Report Type: Spontaneous
  Country: ES (occurrence: None)
  Receive Date: 20131220
  Receipt Date: 20131220
  Transmission Date: 20140711
  Serious: Yes (Hospitalization)
  Sender: FDA-Public Use
  Company Number: 2013P1021926

PATIENT
  Age: 74 Year
  Sex: Female

DRUGS (1)
  1. AMOXICILLIN + CLAVULANATE POTASSIUM [Suspect]
     Indication: INTERVERTEBRAL DISCITIS
     Dosage: UNKNOWN - UNKNOWN  THERAPY DATES

REACTIONS (2)
  - Drug reaction with eosinophilia and systemic symptoms [None]
  - Tubulointerstitial nephritis [None]
